FAERS Safety Report 4611942-6 (Version None)
Quarter: 2005Q2

REPORT INFORMATION
  Report Type: 
  Country: None (occurrence: None)
  Receive Date: 20050308
  Receipt Date: 20050117
  Transmission Date: 20051028
  Serious: Yes (Life-Threatening)
  Sender: FDA-Public Use
  Company Number: 2005UW00871

PATIENT
  Age: 69 Year
  Sex: Female

DRUGS (1)
  1. CRESTOR [Suspect]

REACTIONS (1)
  - PAIN IN EXTREMITY [None]
